FAERS Safety Report 5930605-8 (Version None)
Quarter: 2008Q4

REPORT INFORMATION
  Report Type: 
  Country: None (occurrence: None)
  Receive Date: 20081027
  Receipt Date: 20081020
  Transmission Date: 20090506
  Serious: Yes (Life-Threatening)
  Sender: FDA-Public Use
  Company Number: US-JNJFOC-20081005221

PATIENT
  Sex: Female
  Weight: 61.69 kg

DRUGS (4)
  1. FENTANYL TRANSDERMAL SYSTEM [Suspect]
     Indication: POST PROCEDURAL COMPLICATION
     Route: 062
  2. OXYCODONE [Concomitant]
     Indication: PAIN
     Dosage: 15 MG AS NEEDED
     Route: 048
  3. XANAX [Concomitant]
     Indication: NEUROPATHY PERIPHERAL
     Dosage: 1 MG AS NEEDED
     Route: 048
  4. VITAMIN B-12 [Concomitant]
     Indication: VITAMIN SUPPLEMENTATION
     Route: 030

REACTIONS (1)
  - GASTRIC DISORDER [None]
